FAERS Safety Report 11278514 (Version 1)
Quarter: 2015Q3

REPORT INFORMATION
  Report Type: Spontaneous
  Country: KR (occurrence: KR)
  Receive Date: 20150717
  Receipt Date: 20150717
  Transmission Date: 20151125
  Serious: Yes (Hospitalization)
  Sender: FDA-Public Use
  Company Number: KR-AMGEN-KORCT2015070550

PATIENT
  Age: 83 Year
  Sex: Female
  Weight: 60 kg

DRUGS (57)
  1. DOXORUBICIN [Concomitant]
     Active Substance: DOXORUBICIN
     Dosage: 55 MG, UNK
     Route: 042
     Dates: start: 20150401, end: 20150401
  2. VINCRISTINE [Concomitant]
     Active Substance: VINCRISTINE
     Dosage: 1.5 MG, UNK
     Route: 042
     Dates: start: 20150515, end: 20150515
  3. AMARYL [Concomitant]
     Active Substance: GLIMEPIRIDE
     Dosage: 8 MG, UNK
     Route: 048
     Dates: start: 20120214, end: 20150522
  4. CARDIOXANE [Concomitant]
     Active Substance: DEXRAZOXANE HYDROCHLORIDE
     Dosage: 550 MG, UNK
     Route: 042
     Dates: start: 20150515, end: 20150515
  5. VINCRISTINE [Concomitant]
     Active Substance: VINCRISTINE
     Dosage: 1.5 MG, UNK
     Route: 042
     Dates: start: 20150423, end: 20150423
  6. PREDNISOLONE. [Concomitant]
     Active Substance: PREDNISOLONE
     Dosage: 100 MG, UNK
     Route: 048
     Dates: start: 20150426, end: 20150427
  7. PHAZYME                            /00164001/ [Concomitant]
     Dosage: 95 MG, UNK
     Route: 048
     Dates: start: 20150402, end: 20150402
  8. DIABEX [Concomitant]
     Active Substance: METFORMIN HYDROCHLORIDE
     Dosage: 1000 MG, UNK
     Route: 048
     Dates: start: 20120906
  9. CRAVIT [Concomitant]
     Active Substance: LEVOFLOXACIN
     Dosage: 750 MG, UNK
     Route: 048
     Dates: start: 20150515, end: 20150515
  10. ZEMIGLO [Concomitant]
     Dosage: 50 MG, UNK
     Route: 048
     Dates: start: 20150514, end: 20150628
  11. NEULASTA [Suspect]
     Active Substance: PEGFILGRASTIM
     Dosage: 6 MG, 1X/3WEEKS
     Route: 058
     Dates: start: 20150516
  12. CYCLOPHOSPHAMIDE. [Concomitant]
     Active Substance: CYCLOPHOSPHAMIDE
     Dosage: 800 MG, UNK
     Route: 042
     Dates: start: 20150401, end: 20150401
  13. VINCRISTINE [Concomitant]
     Active Substance: VINCRISTINE
     Dosage: 1.5 MG, UNK
     Route: 042
     Dates: start: 20150401, end: 20150501
  14. PREDNISOLONE. [Concomitant]
     Active Substance: PREDNISOLONE
     Dosage: 125 MG, UNK
     Route: 042
     Dates: start: 20150515, end: 20150515
  15. EMEND [Concomitant]
     Active Substance: APREPITANT
     Dosage: 125 MG, UNK
     Route: 048
     Dates: start: 20150423, end: 20150423
  16. TACENOL [Concomitant]
     Dosage: 1950 MG, UNK
     Route: 048
     Dates: start: 20150403, end: 20150409
  17. ALOXI [Concomitant]
     Active Substance: PALONOSETRON HYDROCHLORIDE
     Dosage: 0.25 MG, UNK
     Route: 042
     Dates: start: 20150423, end: 20150423
  18. PENIRAMIN [Concomitant]
     Dosage: 4 MG, UNK
     Route: 042
     Dates: start: 20150423, end: 20150423
  19. NEULASTA [Suspect]
     Active Substance: PEGFILGRASTIM
     Dosage: 6 MG, 1X/3WEEKS
     Route: 058
     Dates: start: 20150424
  20. RITUXIMAB [Concomitant]
     Active Substance: RITUXIMAB
     Dosage: 580 MG, UNK
     Route: 042
     Dates: start: 20150423, end: 20150423
  21. RITUXIMAB [Concomitant]
     Active Substance: RITUXIMAB
     Dosage: 580 MG, UNK
     Route: 042
     Dates: start: 20150515, end: 20150515
  22. CYTOTEC [Concomitant]
     Active Substance: MISOPROSTOL
     Dosage: 50 MG, UNK
     Route: 048
     Dates: start: 20150515, end: 20150519
  23. TRITTICO [Concomitant]
     Active Substance: TRAZODONE HYDROCHLORIDE
     Dosage: 25 MG, UNK
     Route: 048
     Dates: start: 20150403, end: 20150403
  24. MAGMIL [Concomitant]
     Active Substance: MAGNESIUM HYDROXIDE
     Dosage: 1500 MG, UNK
     Route: 048
     Dates: start: 20150409, end: 20150608
  25. CANCOR [Concomitant]
     Dosage: 2.5 MG, UNK
     Route: 048
     Dates: start: 20120314
  26. CYCLOPHOSPHAMIDE. [Concomitant]
     Active Substance: CYCLOPHOSPHAMIDE
     Dosage: 800 MG, UNK
     Route: 042
     Dates: start: 20150515, end: 20150515
  27. DOXORUBICIN [Concomitant]
     Active Substance: DOXORUBICIN
     Dosage: 55 MG, UNK
     Route: 042
     Dates: start: 20150515, end: 20150515
  28. TRITTICO [Concomitant]
     Active Substance: TRAZODONE HYDROCHLORIDE
     Dosage: 25 MG, UNK
     Route: 048
     Dates: start: 20150514, end: 20150514
  29. ALOXI [Concomitant]
     Active Substance: PALONOSETRON HYDROCHLORIDE
     Dosage: 0.25 MG, UNK
     Route: 042
     Dates: start: 20150515, end: 20150515
  30. CARDIOXANE [Concomitant]
     Active Substance: DEXRAZOXANE HYDROCHLORIDE
     Dosage: 550 MG, UNK
     Route: 042
     Dates: start: 20150423, end: 20150423
  31. PREDNISOLONE. [Concomitant]
     Active Substance: PREDNISOLONE
     Dosage: 100 MG, UNK
     Route: 048
     Dates: start: 20150516, end: 20150519
  32. EMEND [Concomitant]
     Active Substance: APREPITANT
     Dosage: 80 MG, UNK
     Route: 048
     Dates: start: 20150402, end: 20150403
  33. DUPHALAC [Concomitant]
     Active Substance: LACTULOSE
     Dosage: 30 CC
     Route: 048
     Dates: start: 20150402, end: 20150402
  34. OCUFLOX                            /00731801/ [Concomitant]
     Dosage: 3.5 G, UNK
     Route: 061
     Dates: start: 20150403, end: 20150403
  35. TACENOL [Concomitant]
     Dosage: 1300 MG, UNK
     Route: 048
     Dates: start: 20150515, end: 20150515
  36. MEGACE [Concomitant]
     Active Substance: MEGESTROL ACETATE
     Dosage: 20 ML, UNK
     Route: 048
     Dates: start: 20150409, end: 20150608
  37. CADUET [Concomitant]
     Active Substance: AMLODIPINE BESYLATE\ATORVASTATIN CALCIUM
     Dosage: 5 MG, UNK
     Route: 048
     Dates: start: 20120215, end: 20150628
  38. PENIRAMIN [Concomitant]
     Dosage: 4 MG, UNK
     Route: 042
     Dates: start: 20150515, end: 20150515
  39. CITOPCIN                           /00697202/ [Concomitant]
     Dosage: 500 MG, UNK
     Route: 048
     Dates: start: 20150515, end: 20150521
  40. RITUXIMAB [Concomitant]
     Active Substance: RITUXIMAB
     Dosage: 580 MG, UNK
     Route: 042
     Dates: start: 20150401, end: 20150401
  41. DOXORUBICIN [Concomitant]
     Active Substance: DOXORUBICIN
     Dosage: 55 MG, UNK
     Route: 042
     Dates: start: 20150423, end: 20150423
  42. PREDNISOLONE. [Concomitant]
     Active Substance: PREDNISOLONE
     Dosage: 125 MG, UNK
     Route: 042
     Dates: start: 20150401, end: 20150403
  43. PREDNISOLONE. [Concomitant]
     Active Substance: PREDNISOLONE
     Dosage: 125 MG, UNK
     Route: 042
     Dates: start: 20150423, end: 20150425
  44. PREDNISOLONE. [Concomitant]
     Active Substance: PREDNISOLONE
     Dosage: 100 MG, UNK
     Route: 048
     Dates: start: 20150404, end: 20150405
  45. EMEND [Concomitant]
     Active Substance: APREPITANT
     Dosage: 80 MG, UNK
     Route: 048
     Dates: start: 20150424, end: 20150425
  46. EMEND [Concomitant]
     Active Substance: APREPITANT
     Dosage: 125 MG, UNK
     Route: 048
     Dates: start: 20150515, end: 20150515
  47. EMEND [Concomitant]
     Active Substance: APREPITANT
     Dosage: 80 MG, UNK
     Route: 048
     Dates: start: 20150516, end: 20150517
  48. CYTOTEC [Concomitant]
     Active Substance: MISOPROSTOL
     Dosage: 400 MG, UNK
     Route: 048
     Dates: start: 20150402, end: 20150404
  49. CYTOTEC [Concomitant]
     Active Substance: MISOPROSTOL
     Dosage: 400 MG, UNK
     Route: 048
     Dates: start: 20150423, end: 20150426
  50. DIFLUCAN [Concomitant]
     Active Substance: FLUCONAZOLE
     Dosage: 50 MG, UNK
     Route: 048
     Dates: start: 20150403, end: 20150409
  51. ASPIRIN. [Concomitant]
     Active Substance: ASPIRIN
     Dosage: 100 MG, UNK
     Route: 048
     Dates: start: 20120314
  52. NEULASTA [Suspect]
     Active Substance: PEGFILGRASTIM
     Indication: FEBRILE NEUTROPENIA
     Dosage: 6 MG, 1X/3WEEKS
     Route: 058
     Dates: start: 20150402
  53. CYCLOPHOSPHAMIDE. [Concomitant]
     Active Substance: CYCLOPHOSPHAMIDE
     Dosage: 800 MG, UNK
     Route: 042
     Dates: start: 20150423, end: 20150423
  54. PHAZYME                            /00164001/ [Concomitant]
     Dosage: 285 MG, UNK
     Route: 048
     Dates: start: 20150403
  55. TACENOL [Concomitant]
     Dosage: 1300 MG, UNK
     Route: 048
     Dates: start: 20150423, end: 20150423
  56. HUMALOG [Concomitant]
     Active Substance: INSULIN LISPRO
     Dosage: 4 UNIT
     Route: 058
     Dates: start: 20150402, end: 20150402
  57. GALVUS [Concomitant]
     Active Substance: VILDAGLIPTIN
     Dosage: 100 MG, UNK
     Route: 048
     Dates: start: 20120906

REACTIONS (2)
  - Oedema [Recovered/Resolved]
  - Dyspnoea [Recovered/Resolved]

NARRATIVE: CASE EVENT DATE: 20150521
